FAERS Safety Report 25374408 (Version 2)
Quarter: 2025Q2

REPORT INFORMATION
  Report Type: Report from Study
  Country: IE (occurrence: IE)
  Receive Date: 20250529
  Receipt Date: 20250611
  Transmission Date: 20250717
  Serious: Yes (Other)
  Sender: NOVARTIS
  Company Number: IE-002147023-NVSC2025IE075108

PATIENT
  Age: 38 Year
  Sex: Female

DRUGS (2)
  1. RIBOCICLIB [Suspect]
     Active Substance: RIBOCICLIB
     Indication: Breast cancer metastatic
     Route: 048
     Dates: start: 20250501
  2. RIBOCICLIB [Suspect]
     Active Substance: RIBOCICLIB
     Route: 048
     Dates: start: 20250505

REACTIONS (8)
  - Bone pain [Not Recovered/Not Resolved]
  - Insomnia [Not Recovered/Not Resolved]
  - Vulvovaginal candidiasis [Recovering/Resolving]
  - Nausea [Not Recovered/Not Resolved]
  - Taste disorder [Not Recovered/Not Resolved]
  - Fatigue [Not Recovered/Not Resolved]
  - Breast tenderness [Not Recovered/Not Resolved]
  - Tumour pain [Not Recovered/Not Resolved]

NARRATIVE: CASE EVENT DATE: 20250506
